FAERS Safety Report 24263853 (Version 2)
Quarter: 2024Q3

REPORT INFORMATION
  Report Type: Spontaneous
  Country: CA (occurrence: CA)
  Receive Date: 20240829
  Receipt Date: 20240830
  Transmission Date: 20241016
  Serious: Yes (Death, Other)
  Sender: MERCK
  Company Number: CA-009507513-2408CAN008747

PATIENT

DRUGS (1)
  1. WELIREG [Suspect]
     Active Substance: BELZUTIFAN
     Route: 048

REACTIONS (2)
  - Death [Fatal]
  - Drug effect less than expected [Unknown]
